FAERS Safety Report 7394315-5 (Version None)
Quarter: 2011Q2

REPORT INFORMATION
  Report Type: 
  Country: None (occurrence: None)
  Receive Date: 20110405
  Receipt Date: 20110329
  Transmission Date: 20111010
  Serious: Yes (Other)
  Sender: FDA-Public Use
  Company Number: US-ROCHE-721922

PATIENT
  Sex: Male
  Weight: 77.1 kg

DRUGS (3)
  1. ACCUTANE [Suspect]
     Route: 065
     Dates: start: 19980413, end: 19980913
  2. ACCUTANE [Suspect]
     Indication: ACNE
     Route: 065
     Dates: start: 19970108, end: 19970606
  3. IBUPROFEN [Concomitant]
     Dates: start: 19830101, end: 20000101

REACTIONS (7)
  - COLITIS ULCERATIVE [None]
  - SUICIDAL IDEATION [None]
  - INFLAMMATORY BOWEL DISEASE [None]
  - BLOOD ALKALINE PHOSPHATASE DECREASED [None]
  - DEPRESSION [None]
  - EPISTAXIS [None]
  - BLOOD CHOLESTEROL INCREASED [None]
